FAERS Safety Report 17710937 (Version 8)
Quarter: 2023Q1

REPORT INFORMATION
  Report Type: Spontaneous
  Country: US (occurrence: US)
  Receive Date: 20200427
  Receipt Date: 20230227
  Transmission Date: 20230418
  Serious: Yes (Other)
  Sender: FDA-Public Use
  Company Number: US-PFIZER INC-2020160653

PATIENT
  Age: 61 Year
  Sex: Male

DRUGS (2)
  1. ARTHROTEC [Suspect]
     Active Substance: DICLOFENAC SODIUM\MISOPROSTOL
     Indication: Arthritis
     Dosage: 50 MG, 2X/DAY
  2. ARTHROTEC [Suspect]
     Active Substance: DICLOFENAC SODIUM\MISOPROSTOL
     Indication: Arthritis

REACTIONS (4)
  - Asbestosis [Unknown]
  - Intentional product misuse [Unknown]
  - Feeling abnormal [Unknown]
  - Back pain [Unknown]
